FAERS Safety Report 5809270-6 (Version None)
Quarter: 2008Q3

REPORT INFORMATION
  Report Type: 
  Country: None (occurrence: None)
  Receive Date: 20080714
  Receipt Date: 20080709
  Transmission Date: 20090109
  Serious: Yes (Hospitalization)
  Sender: FDA-Public Use
  Company Number: JP-BOEHRINGER INGELHEIM GMBH, GERMANY-2007-BP-20697NB

PATIENT
  Sex: Male
  Weight: 52.1 kg

DRUGS (6)
  1. PRAMIPEXOLE DIHYDROCHLORIDE [Suspect]
     Indication: PARKINSON'S DISEASE
     Route: 048
     Dates: start: 20040528
  2. SELEGILINE HCL [Concomitant]
     Indication: PARKINSON'S DISEASE
     Route: 048
     Dates: start: 20020115
  3. CARBIDOPA AND LEVODOPA [Concomitant]
     Indication: PARKINSON'S DISEASE
     Route: 048
     Dates: start: 20001220
  4. SYMMETREL [Concomitant]
     Indication: PARKINSON'S DISEASE
     Route: 048
     Dates: start: 20000627
  5. ALPRAZOLAM [Concomitant]
     Route: 048
     Dates: start: 20011023
  6. DEPAS [Concomitant]
     Route: 048
     Dates: start: 20020730

REACTIONS (2)
  - DELIRIUM [None]
  - INAPPROPRIATE ANTIDIURETIC HORMONE SECRETION [None]
